FAERS Safety Report 25644648 (Version 1)
Quarter: 2025Q3

REPORT INFORMATION
  Report Type: Spontaneous
  Country: CN (occurrence: CN)
  Receive Date: 20250805
  Receipt Date: 20250805
  Transmission Date: 20251021
  Serious: Yes (Other)
  Sender: PFIZER
  Company Number: CN-PFIZER INC-PV202500093497

PATIENT
  Age: 49 Year
  Sex: Female
  Weight: 68.3 kg

DRUGS (4)
  1. EPIRUBICIN [Suspect]
     Active Substance: EPIRUBICIN
     Indication: Breast cancer
     Dosage: 130 MG, 1X/DAY
     Route: 041
     Dates: start: 20250617, end: 20250617
  2. EPIRUBICIN [Suspect]
     Active Substance: EPIRUBICIN
     Dosage: 130 MG, 1X/DAY
     Route: 041
     Dates: start: 20250701, end: 20250701
  3. CYCLOPHOSPHAMIDE [Suspect]
     Active Substance: CYCLOPHOSPHAMIDE
     Indication: Breast cancer
     Dosage: 980 MG, 1X/DAY
     Route: 041
     Dates: start: 20250617, end: 20250617
  4. CYCLOPHOSPHAMIDE [Suspect]
     Active Substance: CYCLOPHOSPHAMIDE
     Dosage: 980 MG, 1X/DAY
     Route: 041
     Dates: start: 20250701, end: 20250701

REACTIONS (2)
  - Erythema multiforme [Recovering/Resolving]
  - Urticaria [Recovering/Resolving]

NARRATIVE: CASE EVENT DATE: 20250626
